FAERS Safety Report 8905826 (Version 1)
Quarter: 2012Q4

REPORT INFORMATION
  Report Type: 
  Country: US (occurrence: US)
  Receive Date: 20121109
  Receipt Date: 20121109
  Transmission Date: 20130627
  Serious: No
  Sender: FDA-Public Use
  Company Number: US-009507513-1211USA003162

PATIENT
  Age: 12 Year
  Sex: Female

DRUGS (1)
  1. CLARITIN [Suspect]
     Indication: SEASONAL ALLERGY
     Dosage: 20 mg, Once
     Route: 048
     Dates: start: 20120906

REACTIONS (1)
  - Overdose [Recovering/Resolving]
